FAERS Safety Report 6017744-0 (Version None)
Quarter: 2008Q4

REPORT INFORMATION
  Report Type: 
  Country: None (occurrence: None)
  Receive Date: 20081223
  Receipt Date: 20081216
  Transmission Date: 20090506
  Serious: Yes (Other)
  Sender: FDA-Public Use
  Company Number: US-TYCO HEALTHCARE/MALLINCKRODT-T200802146

PATIENT

DRUGS (1)
  1. OPTIRAY 300 [Suspect]
     Dosage: UNK

REACTIONS (1)
  - CARDIO-RESPIRATORY ARREST [None]
